FAERS Safety Report 5154222-5 (Version None)
Quarter: 2006Q4

REPORT INFORMATION
  Report Type: 
  Country: None (occurrence: None)
  Receive Date: 20061114
  Receipt Date: 20061026
  Transmission Date: 20070319
  Serious: Yes (Death)
  Sender: FDA-Public Use
  Company Number: GXKR2006DE06717

PATIENT
  Age: 42 Year
  Sex: Female

DRUGS (3)
  1. CITALOPRAM (NGX) (CITALOPRAM) [Suspect]
     Indication: SUICIDE ATTEMPT
     Dosage: 1.2 G, ORAL
     Route: 048
  2. MOCLOBEMIDE (NGX) (MOCLOBEMIDE) [Suspect]
     Indication: SUICIDE ATTEMPT
     Dosage: 6 G, ORAL
     Route: 048
  3. ETHANOL (ETHANOL) [Suspect]
     Indication: SUICIDE ATTEMPT
     Dosage: 0.5 L, ORAL
     Route: 048

REACTIONS (16)
  - BODY TEMPERATURE INCREASED [None]
  - BRADYCARDIA [None]
  - CARDIAC ARREST [None]
  - COMPLETED SUICIDE [None]
  - CONVULSION [None]
  - DISORIENTATION [None]
  - DISSEMINATED INTRAVASCULAR COAGULATION [None]
  - ELECTROMECHANICAL DISSOCIATION [None]
  - HYPERTONIA [None]
  - HYPOVOLAEMIA [None]
  - INTENTIONAL OVERDOSE [None]
  - MULTI-ORGAN FAILURE [None]
  - SEROTONIN SYNDROME [None]
  - SOMNOLENCE [None]
  - TACHYCARDIA [None]
  - TRISMUS [None]
